FAERS Safety Report 4601096-4 (Version None)
Quarter: 2005Q1

REPORT INFORMATION
  Report Type: 
  Country: None (occurrence: None)
  Receive Date: 20050304
  Receipt Date: 20050304
  Transmission Date: 20050727
  Serious: Yes (Other)
  Sender: FDA-Public Use
  Company Number: None

PATIENT
  Sex: Female
  Weight: 56.6996 kg

DRUGS (4)
  1. DEXAMETHASONE [Suspect]
     Indication: PLANTAR FASCIITIS
     Route: 050
  2. VALIUM [Concomitant]
  3. RELAFEN [Concomitant]
  4. DARVOCET [Concomitant]

REACTIONS (11)
  - DECREASED IMMUNE RESPONSIVENESS [None]
  - DIFFICULTY IN WALKING [None]
  - EAR INFECTION [None]
  - EPSTEIN-BARR VIRUS ANTIGEN POSITIVE [None]
  - FATIGUE [None]
  - FEELING ABNORMAL [None]
  - MALAISE [None]
  - MEDICATION ERROR [None]
  - PAIN [None]
  - PALLOR [None]
  - PIGMENTED NAEVUS [None]
